FAERS Safety Report 9325594 (Version 5)
Quarter: 2013Q3

REPORT INFORMATION
  Report Type: Report from Study
  Country: CA (occurrence: CA)
  Receive Date: 20130604
  Receipt Date: 20130918
  Transmission Date: 20140515
  Serious: Yes (Other)
  Sender: FDA-Public Use
  Company Number: PHHY2013CA034876

PATIENT
  Age: 78 Year
  Sex: Female

DRUGS (5)
  1. GLEEVEC [Suspect]
     Dosage: 400 MG, QD
     Route: 048
     Dates: start: 20130327, end: 20130503
  2. GLEEVEC [Suspect]
     Dosage: UNK UKN, UNK
     Dates: start: 20130513
  3. GLEEVEC [Suspect]
     Dosage: 400 MG, QD
     Route: 048
  4. GLEEVEC [Suspect]
     Dosage: 400 MG, QD
     Route: 048
     Dates: end: 20130805
  5. IRON [Concomitant]
     Dosage: UNK UKN, UNK

REACTIONS (20)
  - Bladder neoplasm [Unknown]
  - Second primary malignancy [Unknown]
  - Blood urine present [Unknown]
  - Platelet count decreased [Unknown]
  - Haemoglobin decreased [Unknown]
  - Gastrointestinal haemorrhage [Unknown]
  - Haematochezia [Unknown]
  - Haemorrhage [Unknown]
  - Pain [Unknown]
  - Disturbance in attention [Unknown]
  - Fibromyalgia [Unknown]
  - Melaena [Unknown]
  - Asthenia [Unknown]
  - Fatigue [Unknown]
  - Nausea [Unknown]
  - Dyspepsia [Unknown]
  - Ageusia [Unknown]
  - Constipation [Unknown]
  - Contusion [Unknown]
  - Weight decreased [Unknown]
